FAERS Safety Report 5090390-1 (Version None)
Quarter: 2006Q3

REPORT INFORMATION
  Report Type: 
  Country: None (occurrence: None)
  Receive Date: 20060828
  Receipt Date: 20060817
  Transmission Date: 20061208
  Serious: Yes (Life-Threatening)
  Sender: FDA-Public Use
  Company Number: GB-JNJFOC-20060804225

PATIENT
  Sex: Male

DRUGS (14)
  1. REOPRO [Suspect]
     Indication: ACUTE MYOCARDIAL INFARCTION
     Route: 042
  2. ULTRAVIST 370 [Suspect]
     Indication: ANGIOPLASTY
     Route: 042
  3. ULTRAVIST 370 [Suspect]
     Indication: ACUTE MYOCARDIAL INFARCTION
     Route: 042
  4. ASPIRIN [Concomitant]
     Indication: ANGINA PECTORIS
  5. ATENOLOL [Concomitant]
     Indication: ANGINA PECTORIS
  6. ATORVASTATIN CALCIUM [Concomitant]
     Indication: ANGINA PECTORIS
  7. BENDROFLUAZIDE [Concomitant]
     Indication: ANGINA PECTORIS
  8. CLOPIDOGREL [Concomitant]
     Indication: ANGINA PECTORIS
  9. GLICLAZIDE [Concomitant]
  10. GTN-S [Concomitant]
     Indication: ANGINA PECTORIS
     Route: 042
  11. LIGNOCAINE [Concomitant]
     Indication: ANGINA PECTORIS
  12. METFORMIN HCL [Concomitant]
     Indication: DIABETES MELLITUS
  13. SIMVASTATIN [Concomitant]
     Indication: ANGINA PECTORIS
  14. VOLPLEX [Concomitant]

REACTIONS (4)
  - DYSPNOEA [None]
  - ERYTHEMA [None]
  - HYPOTENSION [None]
  - OEDEMA [None]
